FAERS Safety Report 6526379-2 (Version None)
Quarter: 2009Q4

REPORT INFORMATION
  Report Type: 
  Country: None (occurrence: None)
  Receive Date: 20091229
  Receipt Date: 20091216
  Transmission Date: 20100525
  Serious: Yes (Death, Hospitalization)
  Sender: FDA-Public Use
  Company Number: WAES 0912USA01607

PATIENT
  Age: 45 Year
  Sex: Female
  Weight: 58.9676 kg

DRUGS (2)
  1. ISENTRESS [Suspect]
     Indication: HIV INFECTION
     Dosage: 400 MG/ BID/ PO
     Route: 048
     Dates: start: 20080812, end: 20091213
  2. ETRAVIRINE UNK [Suspect]
     Dosage: 200 MG/ BID/ PO
     Route: 048
     Dates: start: 20080812, end: 20091213

REACTIONS (6)
  - ABDOMINAL PAIN [None]
  - LYMPHOMA [None]
  - METASTATIC NEOPLASM [None]
  - PELVIC PAIN [None]
  - PYREXIA [None]
  - RECURRENT CANCER [None]
